FAERS Safety Report 5957422-7 (Version None)
Quarter: 2008Q4

REPORT INFORMATION
  Report Type: 
  Country: None (occurrence: None)
  Receive Date: 20081114
  Receipt Date: 20081105
  Transmission Date: 20090506
  Serious: Yes (Other)
  Sender: FDA-Public Use
  Company Number: 2008AP003027

PATIENT
  Age: 49 Year
  Sex: Male

DRUGS (2)
  1. ALENDRONATE SODIUM [Suspect]
     Dosage: PO
     Route: 048
  2. INSULIN [Concomitant]

REACTIONS (4)
  - DYSPHAGIA [None]
  - INCORRECT ROUTE OF DRUG ADMINISTRATION [None]
  - ORAL CANDIDIASIS [None]
  - TONGUE ULCERATION [None]
